FAERS Safety Report 6470224-0 (Version None)
Quarter: 2009Q4

REPORT INFORMATION
  Report Type: 
  Country: None (occurrence: None)
  Receive Date: 20091203
  Receipt Date: 20071218
  Transmission Date: 20100525
  Serious: Yes (Other)
  Sender: FDA-Public Use
  Company Number: US-ELI_LILLY_AND_COMPANY-US200712003961

PATIENT
  Sex: Male
  Weight: 98.866 kg

DRUGS (6)
  1. BYETTA [Suspect]
     Indication: TYPE 2 DIABETES MELLITUS
     Dosage: 5 UG, 2/D
     Route: 058
     Dates: start: 20070801, end: 20070901
  2. BYETTA [Suspect]
     Dosage: 10 UG, 2/D
     Route: 058
     Dates: start: 20070901
  3. COREG [Concomitant]
     Indication: CARDIAC DISORDER
     Dates: start: 20020101
  4. VYTORIN [Concomitant]
     Indication: CARDIAC DISORDER
     Dates: start: 20020101
  5. SYNTHROID [Concomitant]
     Indication: CARDIAC DISORDER
     Dates: start: 20020101
  6. GLUCOTROL [Concomitant]
     Dosage: 10 MG, 2/D

REACTIONS (4)
  - DIZZINESS [None]
  - EXCORIATION [None]
  - FALL [None]
  - SYNCOPE [None]
